FAERS Safety Report 14626812 (Version 6)
Quarter: 2025Q3

REPORT INFORMATION
  Report Type: Other
  Country: EU (occurrence: EU)
  Receive Date: 20180312
  Receipt Date: 20250724
  Transmission Date: 20251021
  Serious: Yes (Other)
  Sender: NOVA LABORATORIES LIMITED
  Company Number: EU-RARE DISEASE THERAPEUTICS, INC.-2043531

PATIENT
  Age: 19 Year
  Sex: Female

DRUGS (31)
  1. PURIXAN [Suspect]
     Active Substance: MERCAPTOPURINE
     Indication: Acute lymphocytic leukaemia
  2. BLINCYTO [Suspect]
     Active Substance: BLINATUMOMAB
     Dates: start: 20161220
  3. LENOGRASTIM [Suspect]
     Active Substance: LENOGRASTIM
  4. CYTARABINE [Suspect]
     Active Substance: CYTARABINE
  5. FILGRASTIM [Suspect]
     Active Substance: FILGRASTIM
  6. INOTUZUMAB OZOGAMICIN [Concomitant]
     Active Substance: INOTUZUMAB OZOGAMICIN
  7. DEXAMETHASONE SODIUM PHOSPHATE [Suspect]
     Active Substance: DEXAMETHASONE SODIUM PHOSPHATE
  8. DEXAMETHASONE SODIUM PHOSPHATE [Suspect]
     Active Substance: DEXAMETHASONE SODIUM PHOSPHATE
  9. DEXAMETHASONE SODIUM PHOSPHATE [Suspect]
     Active Substance: DEXAMETHASONE SODIUM PHOSPHATE
  10. LEUCOVORIN [Suspect]
     Active Substance: LEUCOVORIN\LEUCOVORIN CALCIUM
  11. THIOTEPA [Suspect]
     Active Substance: THIOTEPA
     Dates: start: 20150904
  12. PREDNISONE [Suspect]
     Active Substance: PREDNISONE
  13. CYCLOPHOSPHAMIDE [Suspect]
     Active Substance: CYCLOPHOSPHAMIDE
  14. CYCLOPHOSPHAMIDE [Suspect]
     Active Substance: CYCLOPHOSPHAMIDE
  15. VINCRISTINE SULFATE [Suspect]
     Active Substance: VINCRISTINE SULFATE
  16. FILGRASTIM [Suspect]
     Active Substance: FILGRASTIM
  17. FILGRASTIM [Suspect]
     Active Substance: FILGRASTIM
  18. FILGRASTIM [Suspect]
     Active Substance: FILGRASTIM
  19. FILGRASTIM [Suspect]
     Active Substance: FILGRASTIM
  20. IDARUBICIN HYDROCHLORIDE [Suspect]
     Active Substance: IDARUBICIN HYDROCHLORIDE
  21. IDARUBICIN HYDROCHLORIDE [Suspect]
     Active Substance: IDARUBICIN HYDROCHLORIDE
  22. METHOTREXATE [Suspect]
     Active Substance: METHOTREXATE
  23. FLUDARABINE [Suspect]
     Active Substance: FLUDARABINE PHOSPHATE
     Dates: start: 20150904
  24. LENOGRASTIM [Suspect]
     Active Substance: LENOGRASTIM
  25. LENOGRASTIM [Suspect]
     Active Substance: LENOGRASTIM
  26. LENOGRASTIM [Suspect]
     Active Substance: LENOGRASTIM
  27. LENOGRASTIM [Suspect]
     Active Substance: LENOGRASTIM
  28. BUSULFAN [Suspect]
     Active Substance: BUSULFAN
     Dates: start: 20150904
  29. CYTARABINE [Suspect]
     Active Substance: CYTARABINE
  30. CYTARABINE [Suspect]
     Active Substance: CYTARABINE
  31. CYTARABINE [Suspect]
     Active Substance: CYTARABINE

REACTIONS (4)
  - Seizure [Recovered/Resolved]
  - Neoplasm recurrence [Unknown]
  - Acute lymphocytic leukaemia recurrent [Unknown]
  - Neurotoxicity [Recovered/Resolved]
